FAERS Safety Report 15310773 (Version 1)
Quarter: 2018Q3

REPORT INFORMATION
  Report Type: Spontaneous
  Country: US (occurrence: US)
  Receive Date: 20180813
  Receipt Date: 20180813
  Transmission Date: 20181010
  Serious: Yes (Other)
  Sender: FDA-Public Use
  Company Number: None

PATIENT
  Age: 38 Year
  Sex: Female
  Weight: 121.5 kg

DRUGS (12)
  1. ATORVISTATIN [Concomitant]
  2. ZOFRAN [Concomitant]
     Active Substance: ONDANSETRON HYDROCHLORIDE
  3. AIMOVIG [Suspect]
     Active Substance: ERENUMAB-AOOE
     Indication: MIGRAINE
     Dosage: ?          QUANTITY:2 INJECTIONS THER FREQUENCY:MONTHLY;?
     Route: 058
     Dates: start: 20180723, end: 20180723
  4. GABAPENTIN. [Concomitant]
     Active Substance: GABAPENTIN
  5. VIIBRYD [Concomitant]
     Active Substance: VILAZODONE HYDROCHLORIDE
  6. BACLOFEN. [Concomitant]
     Active Substance: BACLOFEN
  7. RELIZEN [Concomitant]
  8. LUNESTA [Concomitant]
     Active Substance: ESZOPICLONE
  9. SKELAXIN [Concomitant]
     Active Substance: METAXALONE
  10. IMITREX [Concomitant]
     Active Substance: SUMATRIPTAN SUCCINATE
  11. OMEPRAZOLE. [Concomitant]
     Active Substance: OMEPRAZOLE
  12. AIMOVIG [Suspect]
     Active Substance: ERENUMAB-AOOE
     Indication: PROPHYLAXIS
     Dosage: ?          QUANTITY:2 INJECTIONS THER FREQUENCY:MONTHLY;?
     Route: 058
     Dates: start: 20180723, end: 20180723

REACTIONS (4)
  - Insomnia [None]
  - Migraine [None]
  - Drug ineffective [None]
  - Headache [None]

NARRATIVE: CASE EVENT DATE: 20180729
